FAERS Safety Report 9058898 (Version 1)
Quarter: 2013Q1

REPORT INFORMATION
  Report Type: Spontaneous
  Country: US (occurrence: US)
  Receive Date: 20130211
  Receipt Date: 20130211
  Transmission Date: 20140127
  Serious: No
  Sender: FDA-Public Use
  Company Number: US-BRISTOL-MYERS SQUIBB COMPANY-16331399

PATIENT
  Age: 46 Year
  Sex: Male
  Weight: 113 kg

DRUGS (1)
  1. METFORMIN HCL [Suspect]
     Dosage: INTER FOR A WEEK AND RESTARTED?EXPIRATION DATE: DISCARD AFTER 06JUL2011

REACTIONS (2)
  - Vision blurred [Unknown]
  - Glycosylated haemoglobin increased [Unknown]
